FAERS Safety Report 24594153 (Version 1)
Quarter: 2024Q4

REPORT INFORMATION
  Report Type: Spontaneous
  Country: MD (occurrence: MD)
  Receive Date: 20241108
  Receipt Date: 20241108
  Transmission Date: 20250114
  Serious: Yes (Other)
  Sender: RANBAXY
  Company Number: MD-SUN PHARMACEUTICAL INDUSTRIES LTD-2024R1-477992

PATIENT
  Sex: Female
  Weight: 2.3 kg

DRUGS (1)
  1. IBUPROFEN [Suspect]
     Active Substance: IBUPROFEN
     Indication: Analgesic therapy
     Dosage: 400 MILLIGRAM, 1DOSE/12HOUR
     Route: 064

REACTIONS (3)
  - Foetal exposure during pregnancy [Unknown]
  - Premature baby [Unknown]
  - Low birth weight baby [Unknown]
